FAERS Safety Report 25542629 (Version 3)
Quarter: 2025Q3

REPORT INFORMATION
  Report Type: Report from Study
  Country: GB (occurrence: GB)
  Receive Date: 20250711
  Receipt Date: 20250806
  Transmission Date: 20251020
  Serious: Yes (Hospitalization, Other)
  Sender: EMD SERONO INC
  Company Number: GB-Merck Healthcare KGaA-2025035119

PATIENT
  Sex: Female

DRUGS (1)
  1. MAVENCLAD [Suspect]
     Active Substance: CLADRIBINE
     Indication: Multiple sclerosis
     Dates: start: 20250616

REACTIONS (2)
  - Pneumonia [Unknown]
  - Sepsis [Unknown]
